FAERS Safety Report 10719986 (Version 1)
Quarter: 2015Q1

REPORT INFORMATION
  Report Type: Spontaneous
  Country: US (occurrence: US)
  Receive Date: 20150119
  Receipt Date: 20150119
  Transmission Date: 20150721
  Serious: No
  Sender: FDA-Public Use
  Company Number: US-UNITED THERAPEUTICS-UNT-2014-011432

PATIENT
  Sex: Male
  Weight: 113.38 kg

DRUGS (1)
  1. TYVASO [Suspect]
     Active Substance: TREPROSTINIL
     Indication: PULMONARY HYPERTENSION
     Dosage: 18-54 MICROGRAMS, QID
     Dates: start: 20141112

REACTIONS (6)
  - Wheezing [Unknown]
  - Therapy cessation [Unknown]
  - Diarrhoea [Unknown]
  - Cough [Unknown]
  - Adverse drug reaction [Unknown]
  - Bronchitis [Unknown]

NARRATIVE: CASE EVENT DATE: 2014
